FAERS Safety Report 8342263-6 (Version None)
Quarter: 2012Q2

REPORT INFORMATION
  Report Type: 
  Country: None (occurrence: None)
  Receive Date: 20120507
  Receipt Date: 20120501
  Transmission Date: 20120825
  Serious: Yes (Other)
  Sender: FDA-Public Use
  Company Number: US-GILEAD-2012-0054408

PATIENT
  Age: 37 Year
  Sex: Female

DRUGS (3)
  1. EMTRICITABINE/TENOFOVIR DISOPROXIL FUMARATE [Suspect]
     Indication: HIV INFECTION
     Dosage: UNK
     Route: 048
  2. FOSAMPRENAVIR CALCIUM [Concomitant]
     Indication: HIV INFECTION
     Dosage: UNK
  3. RALTEGRAVIR [Concomitant]
     Indication: HIV INFECTION
     Dosage: UNK

REACTIONS (1)
  - ABORTION SPONTANEOUS [None]
